FAERS Safety Report 4995867-2 (Version None)
Quarter: 2006Q2

REPORT INFORMATION
  Report Type: 
  Country: None (occurrence: None)
  Receive Date: 20060504
  Receipt Date: 20060424
  Transmission Date: 20061013
  Serious: Yes (Other)
  Sender: FDA-Public Use
  Company Number: 2006-DE-02065GD

PATIENT
  Age: 80 Year
  Sex: Male

DRUGS (4)
  1. MORPHINE [Suspect]
     Indication: POST HERPETIC NEURALGIA
     Dosage: INCREASING DOSES, PO
     Route: 048
  2. DEXTROMETHORPHAN HYDROBROMIDE [Suspect]
     Indication: POST HERPETIC NEURALGIA
     Dosage: INCREASING DOSES
  3. AMITRIPTYLINE (AMITRIPTYLINE) [Suspect]
     Indication: POST HERPETIC NEURALGIA
     Dosage: INCREASING DOSES
  4. GABAPENTIN [Suspect]
     Indication: POST HERPETIC NEURALGIA
     Dosage: INCREASING DOSES

REACTIONS (2)
  - DELIRIUM [None]
  - NO THERAPEUTIC RESPONSE [None]
